FAERS Safety Report 21113482 (Version 1)
Quarter: 2022Q3

REPORT INFORMATION
  Report Type: Spontaneous
  Country: US (occurrence: US)
  Receive Date: 20220721
  Receipt Date: 20220721
  Transmission Date: 20221027
  Serious: No
  Sender: FDA-Public Use
  Company Number: US-PFIZER INC-202200986432

PATIENT
  Age: 44 Year
  Sex: Female

DRUGS (15)
  1. PAXLOVID [Suspect]
     Active Substance: NIRMATRELVIR\RITONAVIR
     Indication: COVID-19 treatment
     Dosage: UNK
     Dates: start: 20220629, end: 20220703
  2. TOPIRAMATE [Concomitant]
     Active Substance: TOPIRAMATE
     Dosage: 25 MG
  3. ADDERALL [Concomitant]
     Active Substance: AMPHETAMINE ASPARTATE\AMPHETAMINE SULFATE\DEXTROAMPHETAMINE SACCHARATE\DEXTROAMPHETAMINE SULFATE
     Dosage: 25 MG
     Dates: end: 20220628
  4. GABAPENTIN [Concomitant]
     Active Substance: GABAPENTIN
     Dosage: 300 MG
  5. ACETAMINOPHEN [Concomitant]
     Active Substance: ACETAMINOPHEN
     Dosage: 500 MG
  6. LORATADINE [Concomitant]
     Active Substance: LORATADINE
     Dosage: 10 MG
  7. FAMOTIDINE [Concomitant]
     Active Substance: FAMOTIDINE
     Dosage: 10 MG
  8. METHYL B-12 + METHYL FOLATE [Concomitant]
     Dosage: 1 MG
  9. VITAMIN D3 [Concomitant]
     Active Substance: CHOLECALCIFEROL
     Dosage: 5000 IU
  10. MELATONIN [Concomitant]
     Active Substance: MELATONIN
     Dosage: 1 MG
     Dates: end: 20220628
  11. SACCHAROMYCES CEREVISIAE [Concomitant]
     Active Substance: SACCHAROMYCES CEREVISIAE
     Dosage: UNK
  12. MAGNESIUM TAURATE [Concomitant]
     Dosage: 125 MG
  13. GENTLE IRON [FERROUS BISGLYCINATE] [Concomitant]
     Dosage: 25 MG
  14. PHENETHYLAMINE [Concomitant]
     Active Substance: PHENETHYLAMINE
     Dosage: 400 MG
  15. DEGLYCYRRHIZED LICORICE [Concomitant]
     Dosage: UNK

REACTIONS (2)
  - Disease recurrence [Recovering/Resolving]
  - COVID-19 [Recovering/Resolving]

NARRATIVE: CASE EVENT DATE: 20220710
